FAERS Safety Report 13522212 (Version 2)
Quarter: 2017Q2

REPORT INFORMATION
  Report Type: Report from Study
  Country: BR (occurrence: BR)
  Receive Date: 20170508
  Receipt Date: 20170531
  Transmission Date: 20170830
  Serious: Yes (Other)
  Sender: FDA-Public Use
  Company Number: BR-GLAXOSMITHKLINE-BR2015GSK057615

PATIENT
  Sex: Female
  Weight: 65 kg

DRUGS (1)
  1. BELIMUMAB [Suspect]
     Active Substance: BELIMUMAB
     Indication: SYSTEMIC LUPUS ERYTHEMATOSUS
     Dosage: UNK
     Dates: start: 20150303

REACTIONS (8)
  - Immunodeficiency [Unknown]
  - Inappropriate schedule of drug administration [Unknown]
  - Infection [Recovered/Resolved]
  - Weight decreased [Unknown]
  - Bedridden [Not Recovered/Not Resolved]
  - Influenza [Recovered/Resolved]
  - Viral upper respiratory tract infection [Unknown]
  - Drug dose omission [Unknown]
